FAERS Safety Report 15663718 (Version 2)
Quarter: 2019Q2

REPORT INFORMATION
  Report Type: Spontaneous
  Country: US (occurrence: US)
  Receive Date: 20181128
  Receipt Date: 20190518
  Transmission Date: 20190711
  Serious: Yes (Other)
  Sender: FDA-Public Use
  Company Number: US-SUN PHARMACEUTICAL INDUSTRIES LTD-2018R1-192236

PATIENT
  Age: 72 Year
  Sex: Female

DRUGS (2)
  1. QUINIDINE [Suspect]
     Active Substance: QUINIDINE
     Indication: PLASMODIUM FALCIPARUM INFECTION
     Dosage: 1600 MILLIGRAM, TID
     Route: 065
  2. DOXYCYCLINE. [Suspect]
     Active Substance: DOXYCYCLINE
     Indication: PLASMODIUM FALCIPARUM INFECTION
     Dosage: 100 MILLIGRAM, BID
     Route: 065

REACTIONS (1)
  - Condition aggravated [Recovering/Resolving]
